FAERS Safety Report 7562760-0 (Version None)
Quarter: 2011Q2

REPORT INFORMATION
  Report Type: 
  Country: None (occurrence: None)
  Receive Date: 20110622
  Receipt Date: 20110617
  Transmission Date: 20111010
  Serious: Yes (Other)
  Sender: FDA-Public Use
  Company Number: JP-PFIZER INC-2011134687

PATIENT
  Age: 83 Year
  Sex: Female

DRUGS (5)
  1. TEGRETOL [Concomitant]
     Dosage: 0.9 G/DAY
     Route: 048
  2. LYRICA [Suspect]
     Dosage: 100 MG/DAY
     Route: 048
     Dates: start: 20110514, end: 20110601
  3. NORVASC [Concomitant]
     Dosage: 5 MG/DAY
     Route: 048
  4. DIAZEPAM [Concomitant]
     Dosage: 0.6 G/DAY
     Route: 048
  5. LIVALO [Concomitant]
     Dosage: 1 MG/DAY
     Route: 048

REACTIONS (6)
  - GAIT DISTURBANCE [None]
  - VISION BLURRED [None]
  - VISUAL ACUITY REDUCED [None]
  - POLLAKIURIA [None]
  - LIVING IN RESIDENTIAL INSTITUTION [None]
  - MUSCULAR WEAKNESS [None]
